FAERS Safety Report 26204550 (Version 1)
Quarter: 2025Q4

REPORT INFORMATION
  Report Type: Spontaneous
  Country: US (occurrence: US)
  Receive Date: 20251227
  Receipt Date: 20251227
  Transmission Date: 20260119
  Serious: Yes (Other)
  Sender: INSUD PHARMA
  Company Number: US-INSUD PHARMA-2512US10744

PATIENT

DRUGS (2)
  1. TESTOSTERONE [Interacting]
     Active Substance: TESTOSTERONE
     Indication: Hypogonadism
     Dosage: UNK
     Route: 065
  2. VOSILASARM [Interacting]
     Active Substance: VOSILASARM
     Indication: Muscle building therapy
     Dosage: UNK
     Route: 065

REACTIONS (4)
  - Aortic thrombosis [Recovered/Resolved]
  - Abdominal pain [Recovered/Resolved]
  - Vomiting [Recovered/Resolved]
  - Drug interaction [Recovered/Resolved]
